FAERS Safety Report 9177282 (Version 1)
Quarter: 2013Q1

REPORT INFORMATION
  Report Type: Spontaneous
  Country: US (occurrence: None)
  Receive Date: 20130320
  Receipt Date: 20130320
  Transmission Date: 20140127
  Serious: Yes (Hospitalization)
  Sender: FDA-Public Use
  Company Number: None

PATIENT
  Sex: Female
  Weight: 49.8 kg

DRUGS (8)
  1. CARBOPLATIN [Suspect]
  2. PACLITAXEL [Suspect]
  3. PEGFILGRASTIM (NEULASTA) [Suspect]
  4. IMODIUM [Concomitant]
  5. LISINOPRIL [Concomitant]
  6. ZOFRAN [Concomitant]
  7. COMPAZINE [Concomitant]
  8. METOPROLOL TARTRATE [Concomitant]

REACTIONS (2)
  - Dehydration [None]
  - Urinary tract infection [None]
